FAERS Safety Report 7258624-2 (Version None)
Quarter: 2011Q1

REPORT INFORMATION
  Report Type: 
  Country: None (occurrence: None)
  Receive Date: 20110129
  Receipt Date: 20100707
  Transmission Date: 20110831
  Serious: No
  Sender: FDA-Public Use
  Company Number: US-ABBOTT-09P-163-0589062-00

PATIENT
  Age: 56 Year
  Sex: Male

DRUGS (16)
  1. MTX [Concomitant]
     Indication: OSTEOARTHRITIS
     Dosage: 8 TABLETS A WEEK
  2. HYDROXYCHLOROQUINE SULFATE [Concomitant]
     Indication: PRODUCT USED FOR UNKNOWN INDICATION
  3. HUMIRA [Suspect]
     Route: 058
     Dates: start: 20090101, end: 20090101
  4. SIMVASTATIN [Concomitant]
     Indication: PRODUCT USED FOR UNKNOWN INDICATION
  5. ALENDRONATE SODIUM [Concomitant]
     Indication: PRODUCT USED FOR UNKNOWN INDICATION
  6. DIPYRIDAMOLE WITH ASA [Concomitant]
     Indication: PRODUCT USED FOR UNKNOWN INDICATION
     Dosage: 200MG/25MG
  7. HUMIRA [Suspect]
     Indication: RHEUMATOID ARTHRITIS
     Route: 058
     Dates: start: 20060101, end: 20070101
  8. HUMIRA [Suspect]
     Route: 058
     Dates: start: 20100611
  9. PREDNISONE [Concomitant]
     Indication: PRODUCT USED FOR UNKNOWN INDICATION
  10. CALCIUM PLUS [Concomitant]
     Indication: PRODUCT USED FOR UNKNOWN INDICATION
  11. ASA [Concomitant]
     Indication: PRODUCT USED FOR UNKNOWN INDICATION
  12. PIROXICAM [Concomitant]
     Indication: INFLAMMATION
  13. FOLIC ACID [Concomitant]
     Indication: BONE DISORDER
  14. MTX [Concomitant]
     Indication: RHEUMATOID ARTHRITIS
  15. PIROXICAM [Concomitant]
     Indication: PAIN
  16. VITAMIN D [Concomitant]
     Indication: PRODUCT USED FOR UNKNOWN INDICATION

REACTIONS (9)
  - NAUSEA [None]
  - ABDOMINAL PAIN [None]
  - ULCER [None]
  - FLATULENCE [None]
  - GINGIVAL DISORDER [None]
  - HIATUS HERNIA [None]
  - ABDOMINAL DISTENSION [None]
  - PERIODONTAL INFECTION [None]
  - TOOTH DISORDER [None]
